FAERS Safety Report 21130040 (Version 1)
Quarter: 2022Q3

REPORT INFORMATION
  Report Type: Spontaneous
  Country: JP (occurrence: JP)
  Receive Date: 20220726
  Receipt Date: 20220726
  Transmission Date: 20221027
  Serious: No
  Sender: FDA-Public Use
  Company Number: JP-MSD-M2022-28691

PATIENT
  Age: 73 Year
  Sex: Female

DRUGS (1)
  1. LAGEVRIO [Suspect]
     Active Substance: MOLNUPIRAVIR
     Indication: COVID-19 treatment
     Dosage: 800 MILLIGRAM, BID,
     Route: 048
     Dates: start: 20220713

REACTIONS (2)
  - Intentional product misuse [Unknown]
  - Product use complaint [Unknown]

NARRATIVE: CASE EVENT DATE: 20220714
